FAERS Safety Report 23784370 (Version 2)
Quarter: 2024Q2

REPORT INFORMATION
  Report Type: Spontaneous
  Country: US (occurrence: US)
  Receive Date: 20240425
  Receipt Date: 20240426
  Transmission Date: 20240716
  Serious: No
  Sender: FDA-Public Use
  Company Number: US-Kiniksa Pharmaceuticals Ltd.-2023KPU000434

PATIENT
  Sex: Female

DRUGS (2)
  1. ARCALYST [Suspect]
     Active Substance: RILONACEPT
     Indication: Pericarditis
     Route: 058
  2. COLCHICINE [Concomitant]
     Active Substance: COLCHICINE
     Indication: Pericarditis

REACTIONS (5)
  - Dyspnoea [Unknown]
  - Chest pain [Unknown]
  - Atrial flutter [Unknown]
  - Ventricular extrasystoles [Unknown]
  - Drug ineffective [Unknown]
